FAERS Safety Report 18505558 (Version 1)
Quarter: 2020Q4

REPORT INFORMATION
  Report Type: Report from Study
  Country: US (occurrence: US)
  Receive Date: 20201116
  Receipt Date: 20201116
  Transmission Date: 20210114
  Serious: Yes (Hospitalization, Other)
  Sender: FDA-Public Use
  Company Number: US-BAXTER-2020BAX022856

PATIENT
  Age: 64 Year
  Sex: Female

DRUGS (26)
  1. PRILOSEC [Concomitant]
     Active Substance: OMEPRAZOLE MAGNESIUM
     Indication: GASTROOESOPHAGEAL REFLUX DISEASE
     Route: 065
  2. LEXAPRO [Concomitant]
     Active Substance: ESCITALOPRAM OXALATE
     Indication: PRODUCT USED FOR UNKNOWN INDICATION
     Route: 065
  3. VENCLEXTA [Suspect]
     Active Substance: VENETOCLAX
     Indication: CHRONIC LYMPHOCYTIC LEUKAEMIA
     Dosage: 50 MG
     Route: 048
     Dates: start: 20180503, end: 20180509
  4. GAZYVA [Suspect]
     Active Substance: OBINUTUZUMAB
     Indication: PRODUCT USED FOR UNKNOWN INDICATION
     Route: 065
     Dates: end: 20181218
  5. ALLOPURINOL. [Concomitant]
     Active Substance: ALLOPURINOL
     Indication: PRODUCT USED FOR UNKNOWN INDICATION
     Route: 065
  6. DITROPAN XL [Concomitant]
     Active Substance: OXYBUTYNIN CHLORIDE
     Indication: PRODUCT USED FOR UNKNOWN INDICATION
     Dosage: 10 MG
     Route: 065
  7. LISINOPRIL. [Concomitant]
     Active Substance: LISINOPRIL
     Indication: HYPERTENSION
     Dosage: 10 MG
     Route: 048
  8. VENCLEXTA [Suspect]
     Active Substance: VENETOCLAX
     Dosage: 400 MG
     Route: 048
     Dates: start: 20180524
  9. VENCLEXTA [Suspect]
     Active Substance: VENETOCLAX
     Route: 065
     Dates: end: 20190622
  10. PREDNISONE. [Suspect]
     Active Substance: PREDNISONE
     Indication: CHRONIC LYMPHOCYTIC LEUKAEMIA
     Route: 065
  11. CYCLOPHOSPHAMIDE FOR INJECTION, USP [Suspect]
     Active Substance: CYCLOPHOSPHAMIDE
     Indication: CHRONIC LYMPHOCYTIC LEUKAEMIA
     Route: 065
  12. VENCLEXTA [Suspect]
     Active Substance: VENETOCLAX
     Dosage: 200 MG
     Route: 048
     Dates: start: 20180517, end: 20180523
  13. DIPHENHYDRAMINE HYDROCHLORIDE. [Suspect]
     Active Substance: DIPHENHYDRAMINE HYDROCHLORIDE
     Indication: PRODUCT USED FOR UNKNOWN INDICATION
     Route: 065
  14. PYRIDOXINE HYDROCHLORIDE. [Concomitant]
     Active Substance: PYRIDOXINE HYDROCHLORIDE
     Indication: PRODUCT USED FOR UNKNOWN INDICATION
     Dosage: 25 MG
     Route: 065
  15. ISONIAZID. [Concomitant]
     Active Substance: ISONIAZID
     Indication: PRODUCT USED FOR UNKNOWN INDICATION
     Dosage: 300 MG
     Route: 065
  16. VALACYCLOVIR [Concomitant]
     Active Substance: VALACYCLOVIR HYDROCHLORIDE
     Indication: PRODUCT USED FOR UNKNOWN INDICATION
     Dosage: 2000 MG
     Route: 065
  17. IMBRUVICA [Suspect]
     Active Substance: IBRUTINIB
     Indication: CHRONIC LYMPHOCYTIC LEUKAEMIA
     Dosage: 420 MG
     Route: 048
     Dates: start: 20171125, end: 20180112
  18. VENCLEXTA [Suspect]
     Active Substance: VENETOCLAX
     Dosage: 100 MG
     Route: 048
     Dates: start: 20180510, end: 20180516
  19. RITUXIMAB. [Suspect]
     Active Substance: RITUXIMAB
     Indication: CHRONIC LYMPHOCYTIC LEUKAEMIA
     Route: 065
  20. CEFDINIR. [Concomitant]
     Active Substance: CEFDINIR
     Indication: PRODUCT USED FOR UNKNOWN INDICATION
     Route: 065
  21. ACICLOVIR [Concomitant]
     Active Substance: ACYCLOVIR
     Indication: PRODUCT USED FOR UNKNOWN INDICATION
     Route: 065
  22. DOXIL [Suspect]
     Active Substance: DOXORUBICIN HYDROCHLORIDE
     Indication: CHRONIC LYMPHOCYTIC LEUKAEMIA
     Route: 065
  23. VENCLEXTA [Suspect]
     Active Substance: VENETOCLAX
     Indication: CHRONIC LYMPHOCYTIC LEUKAEMIA
     Dosage: 20 MG
     Route: 048
     Dates: start: 20180426, end: 20180502
  24. VENCLEXTA [Suspect]
     Active Substance: VENETOCLAX
     Dosage: 400 MG
     Route: 048
     Dates: start: 20180426
  25. VINCRISTINE [Suspect]
     Active Substance: VINCRISTINE
     Indication: CHRONIC LYMPHOCYTIC LEUKAEMIA
     Route: 065
  26. IMBRUVICA [Suspect]
     Active Substance: IBRUTINIB
     Dosage: 420 MG
     Route: 048
     Dates: start: 20171130, end: 20180113

REACTIONS (39)
  - Epistaxis [Recovered/Resolved]
  - Folliculitis [Not Recovered/Not Resolved]
  - Cellulitis [Unknown]
  - Alopecia [Recovering/Resolving]
  - Therapy partial responder [Unknown]
  - Disease progression [Not Recovered/Not Resolved]
  - Illness [Not Recovered/Not Resolved]
  - Nausea [Recovered/Resolved]
  - Diarrhoea [Not Recovered/Not Resolved]
  - Arthropod bite [Not Recovered/Not Resolved]
  - Blood immunoglobulin G decreased [Not Recovered/Not Resolved]
  - Haematocrit decreased [Unknown]
  - Ejection fraction decreased [Not Recovered/Not Resolved]
  - Muscle spasms [Recovered/Resolved]
  - Neuropathy peripheral [Not Recovered/Not Resolved]
  - Arthralgia [Not Recovered/Not Resolved]
  - Feeling abnormal [Not Recovered/Not Resolved]
  - Septic shock [Unknown]
  - Urinary tract infection [Recovered/Resolved]
  - Nasal congestion [Recovered/Resolved]
  - Lymph gland infection [Recovered/Resolved]
  - Localised infection [Unknown]
  - Physical deconditioning [Recovered/Resolved]
  - Fatigue [Not Recovered/Not Resolved]
  - Erythema multiforme [Not Recovered/Not Resolved]
  - Pruritus [Unknown]
  - Asthenia [Not Recovered/Not Resolved]
  - Paranoia [Not Recovered/Not Resolved]
  - Thrombosis [Recovered/Resolved]
  - Immunodeficiency [Not Recovered/Not Resolved]
  - Infected bite [Unknown]
  - Headache [Unknown]
  - Lymphadenopathy [Unknown]
  - Blood potassium decreased [Recovered/Resolved]
  - Hypophagia [Not Recovered/Not Resolved]
  - Hypertension [Not Recovered/Not Resolved]
  - Onychomadesis [Not Recovered/Not Resolved]
  - Viral infection [Unknown]
  - Neutrophil count decreased [Unknown]

NARRATIVE: CASE EVENT DATE: 20171202
